FAERS Safety Report 11762624 (Version 1)
Quarter: 2015Q4

REPORT INFORMATION
  Report Type: Spontaneous
  Country: US (occurrence: US)
  Receive Date: 20151120
  Receipt Date: 20151120
  Transmission Date: 20160304
  Serious: Yes (Life-Threatening, Other)
  Sender: FDA-Public Use
  Company Number: US-ASTRAZENECA-1998AU02823

PATIENT
  Age: 558 Month
  Sex: Male
  Weight: 122.5 kg

DRUGS (14)
  1. VITAMIN [Concomitant]
     Active Substance: VITAMINS
     Indication: ROUTINE HEALTH MAINTENANCE
     Dosage: 1 TO 2 CAPSULES OF VITAMINS DAILY
     Route: 048
     Dates: start: 2012
  2. BRILINTA [Suspect]
     Active Substance: TICAGRELOR
     Indication: STENT PLACEMENT
     Route: 048
  3. FOLIC ACID. [Concomitant]
     Active Substance: FOLIC ACID
     Indication: HOMOCYSTINAEMIA
     Route: 048
     Dates: start: 2012
  4. IRON [Concomitant]
     Active Substance: IRON
     Indication: EPISTAXIS
     Route: 048
     Dates: start: 2012
  5. BRILINTA [Suspect]
     Active Substance: TICAGRELOR
     Indication: CARDIAC ARREST
     Route: 048
  6. ASPIRIN. [Concomitant]
     Active Substance: ASPIRIN
     Indication: ANTIPLATELET THERAPY
     Route: 048
     Dates: start: 2008
  7. PRILOSEC [Suspect]
     Active Substance: OMEPRAZOLE MAGNESIUM
     Dosage: MERCK SHARP + DOME
     Route: 048
  8. INSULIN [Concomitant]
     Active Substance: INSULIN NOS
     Dates: start: 2010
  9. FLUCONAZOLE. [Suspect]
     Active Substance: FLUCONAZOLE
     Route: 065
  10. FLORINEF ACETATE [Concomitant]
     Active Substance: FLUDROCORTISONE ACETATE
     Indication: ADDISON^S DISEASE
     Route: 048
     Dates: start: 2008
  11. PREDNISONE. [Concomitant]
     Active Substance: PREDNISONE
     Indication: ARTHRALGIA
     Route: 048
     Dates: start: 2008
  12. HYDROCORTISONE. [Concomitant]
     Active Substance: HYDROCORTISONE
     Indication: BLOOD CORTISOL DECREASED
     Route: 048
     Dates: start: 2008
  13. IRON [Concomitant]
     Active Substance: IRON
     Indication: ANAEMIA
     Route: 048
     Dates: start: 2012
  14. CRESTOR [Suspect]
     Active Substance: ROSUVASTATIN CALCIUM
     Indication: BLOOD CHOLESTEROL ABNORMAL
     Route: 048

REACTIONS (5)
  - Haemorrhage [Unknown]
  - Off label use [Unknown]
  - Vomiting [Recovered/Resolved]
  - Cardiac arrest [Unknown]
  - Blood creatine phosphokinase abnormal [Unknown]

NARRATIVE: CASE EVENT DATE: 199801
